FAERS Safety Report 8887117 (Version 2)
Quarter: 2013Q1

REPORT INFORMATION
  Report Type: Spontaneous
  Country: AU (occurrence: AU)
  Receive Date: 20121105
  Receipt Date: 20130117
  Transmission Date: 20140127
  Serious: Yes (Disabling)
  Sender: FDA-Public Use
  Company Number: AU-MERCK-1210AUS011319

PATIENT
  Age: 25 Year
  Sex: Female
  Weight: 75 kg

DRUGS (1)
  1. SAPHRIS [Suspect]
     Indication: BIPOLAR I DISORDER
     Dosage: 1 DF, QD
     Route: 060
     Dates: start: 20120815

REACTIONS (4)
  - Fall [Unknown]
  - Temperature intolerance [Unknown]
  - Tremor [Unknown]
  - Inappropriate schedule of drug administration [Unknown]
